FAERS Safety Report 4729949-7 (Version None)
Quarter: 2005Q3

REPORT INFORMATION
  Report Type: 
  Country: None (occurrence: None)
  Receive Date: 20050801
  Receipt Date: 20050720
  Transmission Date: 20060218
  Serious: Yes (Hospitalization)
  Sender: FDA-Public Use
  Company Number: FR-BRISTOL-MYERS SQUIBB COMPANY-13046420

PATIENT
  Age: 77 Year
  Sex: Male

DRUGS (11)
  1. ELISOR TABS [Suspect]
     Route: 048
     Dates: end: 20050516
  2. CALCIDIA [Suspect]
     Dates: end: 20050516
  3. LASILIX [Concomitant]
  4. TIAPRIDAL [Concomitant]
  5. ALLOPURINOL [Concomitant]
  6. LOXEN LP [Concomitant]
  7. TADENAN [Concomitant]
  8. INSULIN MIXTARD [Concomitant]
     Dosage: DOSAGE FORM = 36 UNITS OF INSULIN MIXTARD 40
  9. PLAVIX [Concomitant]
  10. AMYCOR [Concomitant]
     Indication: FUNGAL INFECTION
  11. DEXERYL [Concomitant]
     Indication: FUNGAL INFECTION

REACTIONS (5)
  - BLOOD CREATINE PHOSPHOKINASE INCREASED [None]
  - HYPERCALCAEMIA [None]
  - HYPERKALAEMIA [None]
  - RENAL FAILURE ACUTE [None]
  - URINARY RETENTION [None]
